FAERS Safety Report 10143805 (Version 2)
Quarter: 2014Q2

REPORT INFORMATION
  Report Type: Spontaneous
  Country: US (occurrence: US)
  Receive Date: 20140430
  Receipt Date: 20140605
  Transmission Date: 20141212
  Serious: Yes (Other)
  Sender: FDA-Public Use
  Company Number: US-ASTRAZENECA-2014SE28655

PATIENT
  Age: 18106 Day
  Sex: Female
  Weight: 63.5 kg

DRUGS (1)
  1. FASLODEX [Suspect]
     Indication: BREAST CANCER METASTATIC
     Route: 030
     Dates: start: 20140224

REACTIONS (3)
  - Metastases to bone [Unknown]
  - Disease progression [Unknown]
  - Hepatic enzyme increased [Not Recovered/Not Resolved]
